FAERS Safety Report 10811897 (Version 1)
Quarter: 2015Q1

REPORT INFORMATION
  Report Type: Spontaneous
  Country: AT (occurrence: None)
  Receive Date: 20150212
  Receipt Date: 20150212
  Transmission Date: 20150721
  Serious: Yes (Other)
  Sender: FDA-Public Use
  Company Number: 2015AJA00006

PATIENT
  Age: 16 Year
  Sex: Male

DRUGS (12)
  1. TEICOPLANIN [Concomitant]
     Active Substance: TEICOPLANIN
  2. MEROPENEM. [Concomitant]
     Active Substance: MEROPENEM
  3. SULFAMETHOXAZOLE AND TRIMETHOPRIM [Concomitant]
     Active Substance: SULFAMETHOXAZOLE\TRIMETHOPRIM
  4. ETOPOSIDE. [Concomitant]
     Active Substance: ETOPOSIDE
  5. CIPROFLOXACIN. [Concomitant]
     Active Substance: CIPROFLOXACIN
  6. TOBRAMYCIN. [Concomitant]
     Active Substance: TOBRAMYCIN
  7. TOTAL BODY IRRADIATION (TBI) [Concomitant]
  8. ATG RABBIT (FRESENIUS) [Concomitant]
  9. ACICLOVIR [Concomitant]
     Active Substance: ACYCLOVIR
  10. VORICONAZOLE. [Concomitant]
     Active Substance: VORICONAZOLE
  11. LEVETIRACETAM. [Suspect]
     Active Substance: LEVETIRACETAM
     Indication: SEIZURE
  12. CEFTAZIDIME. [Concomitant]
     Active Substance: CEFTAZIDIME

REACTIONS (9)
  - Respiratory failure [None]
  - Klebsiella infection [None]
  - Sepsis [None]
  - Pyrexia [None]
  - Neutropenia [None]
  - Transplant failure [None]
  - Mucosal inflammation [None]
  - Myelodysplastic syndrome [None]
  - Pneumonia [None]

NARRATIVE: CASE EVENT DATE: 20141104
